FAERS Safety Report 9579932 (Version 1)
Quarter: 2013Q3

REPORT INFORMATION
  Report Type: Spontaneous
  Country: GB (occurrence: None)
  Receive Date: 20130930
  Receipt Date: 20130930
  Transmission Date: 20140515
  Serious: Yes (Other)
  Sender: FDA-Public Use
  Company Number: AUR-APL-2013-07960

PATIENT
  Age: 70 Year
  Sex: Male
  Weight: 61.4 kg

DRUGS (5)
  1. CITALOPRAM [Suspect]
     Indication: DEPRESSION
     Route: 048
     Dates: start: 20130301, end: 20130812
  2. ASPIRIN ( ACETYLSALICYLIC ACID) [Concomitant]
  3. FLUDARABINE ( FLUDARABINE) [Concomitant]
  4. LANSOPRAZOLE ( LANSOPRAZOLE) [Concomitant]
  5. PREDNISOLONE ( PREDNISOLONE) [Concomitant]

REACTIONS (5)
  - Inappropriate antidiuretic hormone secretion [None]
  - Cognitive disorder [None]
  - Confusional state [None]
  - Aphagia [None]
  - Weight decreased [None]
